FAERS Safety Report 25725167 (Version 1)
Quarter: 2025Q3

REPORT INFORMATION
  Report Type: Spontaneous
  Country: GB (occurrence: GB)
  Receive Date: 20250826
  Receipt Date: 20250826
  Transmission Date: 20251020
  Serious: Yes (Disabling)
  Sender: ALKEM
  Company Number: None

PATIENT
  Age: 39 Year
  Sex: Male
  Weight: 97 kg

DRUGS (2)
  1. PREGABALIN [Suspect]
     Active Substance: PREGABALIN
     Indication: Osteoarthritis
     Route: 065
     Dates: start: 20170215
  2. PREGABALIN [Suspect]
     Active Substance: PREGABALIN
     Indication: Anxiety

REACTIONS (5)
  - Abnormal weight gain [Not Recovered/Not Resolved]
  - Emotional poverty [Unknown]
  - Sleep disorder [Unknown]
  - Anxiety [Unknown]
  - Fatigue [Unknown]

NARRATIVE: CASE EVENT DATE: 20170511
